FAERS Safety Report 10911518 (Version 1)
Quarter: 2015Q1

REPORT INFORMATION
  Report Type: Spontaneous
  Country: DE (occurrence: DE)
  Receive Date: 20150313
  Receipt Date: 20150313
  Transmission Date: 20150721
  Serious: Yes (Life-Threatening, Hospitalization, Other)
  Sender: FDA-Public Use
  Company Number: DE-ABBVIE-15K-062-1359001-00

PATIENT
  Age: 26 Year
  Sex: Female
  Weight: 56 kg

DRUGS (10)
  1. ASPIRIN. [Concomitant]
     Active Substance: ASPIRIN
     Indication: PRODUCT USED FOR UNKNOWN INDICATION
     Dosage: 1-0-0
  2. ATORVASTATIN [Concomitant]
     Active Substance: ATORVASTATIN
     Indication: PRODUCT USED FOR UNKNOWN INDICATION
     Dosage: 0-0-1
  3. PANTOZOL [Concomitant]
     Active Substance: PANTOPRAZOLE SODIUM
     Indication: PRODUCT USED FOR UNKNOWN INDICATION
     Dosage: 0-0-1
  4. DEKRISTOL [Concomitant]
     Active Substance: CHOLECALCIFEROL
     Indication: PRODUCT USED FOR UNKNOWN INDICATION
  5. COLESTYRAMIN [Concomitant]
     Indication: GALLBLADDER DISORDER
     Dosage: 2-8 GRAM DAILY
     Route: 048
     Dates: start: 200810, end: 2014
  6. DECORTIN [Concomitant]
     Active Substance: PREDNISONE
     Indication: PRODUCT USED FOR UNKNOWN INDICATION
     Dosage: 1-0-0
  7. HUMIRA [Suspect]
     Active Substance: ADALIMUMAB
     Dosage: DOSE INCREASED NOS
     Route: 058
     Dates: start: 201308, end: 20141112
  8. COTRIM D.S. [Concomitant]
     Active Substance: SULFAMETHOXAZOLE\TRIMETHOPRIM
     Indication: PRODUCT USED FOR UNKNOWN INDICATION
     Dosage: ONLY SATURDAY AND SUNDAY 1-0-1
  9. BISOPROLOL [Concomitant]
     Active Substance: BISOPROLOL
     Indication: PRODUCT USED FOR UNKNOWN INDICATION
     Dosage: 1-0-0
  10. HUMIRA [Suspect]
     Active Substance: ADALIMUMAB
     Indication: CROHN^S DISEASE
     Route: 058
     Dates: start: 201202, end: 201308

REACTIONS (17)
  - Pericardial effusion [Unknown]
  - Peritonitis [Unknown]
  - Erythema nodosum [Unknown]
  - Crohn^s disease [Unknown]
  - Sinus tachycardia [Unknown]
  - Gastrointestinal anastomotic complication [Unknown]
  - Carotid artery stenosis [Unknown]
  - Bile acid malabsorption [Unknown]
  - Arthritis [Unknown]
  - Intestinal stenosis [Unknown]
  - Postoperative abscess [Unknown]
  - Ventricular extrasystoles [Unknown]
  - Takayasu^s arteritis [Not Recovered/Not Resolved]
  - Crohn^s disease [Unknown]
  - Aortic wall hypertrophy [Unknown]
  - Vasculitis [Unknown]
  - Rash [Unknown]

NARRATIVE: CASE EVENT DATE: 2013
